FAERS Safety Report 18216934 (Version 1)
Quarter: 2020Q3

REPORT INFORMATION
  Report Type: Other
  Country: NP (occurrence: NP)
  Receive Date: 20200901
  Receipt Date: 20200901
  Transmission Date: 20201103
  Serious: Yes (Hospitalization, Other)
  Sender: FDA-Public Use
  Company Number: NP-EYWA PHARMA INC.-2089275

PATIENT
  Age: 33 Year
  Sex: Male

DRUGS (1)
  1. ACETAZOLAMIDE. [Suspect]
     Active Substance: ACETAZOLAMIDE
     Indication: DYSPNOEA
     Route: 065

REACTIONS (3)
  - Drug abuse [Unknown]
  - Diabetic ketoacidosis [Recovered/Resolved]
  - Overdose [Unknown]
